FAERS Safety Report 5413924-3 (Version None)
Quarter: 2007Q3

REPORT INFORMATION
  Report Type: 
  Country: None (occurrence: None)
  Receive Date: 20070814
  Receipt Date: 20070802
  Transmission Date: 20080115
  Serious: Yes (Hospitalization)
  Sender: FDA-Public Use
  Company Number: NL-AMGEN-US238458

PATIENT
  Sex: Male
  Weight: 122 kg

DRUGS (4)
  1. ENBREL [Suspect]
     Indication: DRUG USE FOR UNKNOWN INDICATION
     Dosage: LYOPHILISED: 25 MG 2 TIMES PER WEEK
     Route: 058
     Dates: start: 20061002, end: 20070101
  2. ENBREL [Suspect]
     Dosage: PFS: 25 MG 2 TIMES PER WEEK
     Route: 058
     Dates: start: 20070101, end: 20070501
  3. ENBREL [Suspect]
     Dosage: LYOPHILISED: 25 MG 2 TIMES PER WEEK
     Route: 058
     Dates: start: 20070101
  4. COZAAR [Suspect]
     Indication: HYPERTENSION

REACTIONS (4)
  - ERYTHEMA [None]
  - OEDEMA [None]
  - PHARYNGITIS STREPTOCOCCAL [None]
  - URTICARIA [None]
